FAERS Safety Report 8588513-2 (Version None)
Quarter: 2012Q3

REPORT INFORMATION
  Report Type: 
  Country: None (occurrence: None)
  Receive Date: 20120813
  Receipt Date: 20120802
  Transmission Date: 20120928
  Serious: Yes (Other)
  Sender: FDA-Public Use
  Company Number: US-ASTRAZENECA-2012SE55136

PATIENT
  Age: 50 Year
  Sex: Female
  Weight: 78.5 kg

DRUGS (8)
  1. LOSARTAN POTASSIUM [Concomitant]
     Route: 048
     Dates: start: 20111206, end: 20120702
  2. REQUIP [Concomitant]
     Route: 048
     Dates: start: 20111220, end: 20120417
  3. PROZAC [Concomitant]
     Route: 048
     Dates: start: 20120120
  4. LORTAB [Concomitant]
     Dosage: 7.5-500 MG 1 TABLET TID PRN
     Route: 048
     Dates: start: 20120220, end: 20120320
  5. TRICOR [Concomitant]
     Route: 048
  6. METFORMIN HYDROCHLORIDE [Concomitant]
     Route: 048
     Dates: start: 20120120, end: 20120518
  7. CRESTOR [Suspect]
     Route: 048
     Dates: start: 20111213
  8. LEVOTHROID [Concomitant]
     Route: 048
     Dates: start: 20120224, end: 20120523

REACTIONS (9)
  - BLOOD PRESSURE INCREASED [None]
  - LOSS OF CONSCIOUSNESS [None]
  - VOMITING [None]
  - CONFUSIONAL STATE [None]
  - MIDDLE INSOMNIA [None]
  - URINARY INCONTINENCE [None]
  - SYNCOPE [None]
  - NAUSEA [None]
  - DIZZINESS [None]
